FAERS Safety Report 7423069-9 (Version None)
Quarter: 2011Q2

REPORT INFORMATION
  Report Type: 
  Country: None (occurrence: None)
  Receive Date: 20110419
  Receipt Date: 20110412
  Transmission Date: 20111010
  Serious: No
  Sender: FDA-Public Use
  Company Number: DE-NOVOPROD-326532

PATIENT
  Sex: Female
  Weight: 99 kg

DRUGS (9)
  1. TORASEMID [Concomitant]
     Dosage: 10 MG, BID
  2. HYDROCHLOROTHIAZIDE [Concomitant]
     Dosage: 25 MG, QD
  3. METFORMIN [Concomitant]
     Dosage: 2000 MG, BID
  4. SIMVASTATIN [Concomitant]
     Dosage: 20 MG, QD
  5. VICTOZA [Suspect]
     Indication: TYPE 2 DIABETES MELLITUS
     Dosage: 1.8 MG, QD
     Route: 058
     Dates: start: 20100303, end: 20110325
  6. RAMIPRIL [Concomitant]
     Dosage: 10 MG, QD
  7. METOPROLOL [Concomitant]
     Dosage: 200 MG, BID
  8. LERCANIDIPINA [Concomitant]
     Dosage: 20 MG, BID
  9. ALLOPURINOL [Concomitant]
     Dosage: 300 MG, QD

REACTIONS (1)
  - PANCREATITIS [None]
